FAERS Safety Report 21311240 (Version 1)
Quarter: 2022Q3

REPORT INFORMATION
  Report Type: Spontaneous
  Country: US (occurrence: None)
  Receive Date: 20220909
  Receipt Date: 20220909
  Transmission Date: 20221026
  Serious: No
  Sender: FDA-Public Use
  Company Number: US-FARMAPROD-202202-0254

PATIENT
  Sex: Female

DRUGS (10)
  1. OXERVATE [Suspect]
     Active Substance: CENEGERMIN-BKBJ
     Indication: Neurotrophic keratopathy
     Route: 047
     Dates: start: 20220119
  2. ZINC-15 [Concomitant]
  3. VITAMIN D-400 [Concomitant]
  4. VITAMIN C [Concomitant]
     Active Substance: ASCORBIC ACID
  5. COD LIVER OIL [Concomitant]
     Active Substance: COD LIVER OIL
     Dosage: OIL
  6. OMEPRAZOLE [Concomitant]
     Active Substance: OMEPRAZOLE
  7. LOTEMAX [Concomitant]
     Active Substance: LOTEPREDNOL ETABONATE
  8. REFRESH CLASSIC [Concomitant]
     Active Substance: POLYVINYL ALCOHOL\POVIDONE
  9. AMLODIPINE BESYLATE [Concomitant]
     Active Substance: AMLODIPINE BESYLATE
  10. MOEXIPRIL HYDROCHLORIDE [Concomitant]
     Active Substance: MOEXIPRIL HYDROCHLORIDE

REACTIONS (4)
  - Product dose omission issue [Unknown]
  - Eyelid pain [Unknown]
  - Eyelid irritation [Unknown]
  - Device use issue [Unknown]
